FAERS Safety Report 25122289 (Version 2)
Quarter: 2025Q3

REPORT INFORMATION
  Report Type: Report from Study
  Country: US (occurrence: US)
  Receive Date: 20250326
  Receipt Date: 20250905
  Transmission Date: 20251020
  Serious: No
  Sender: SUNOVION
  Company Number: US-SMPA-2025SPA002568AA

PATIENT
  Age: 82 Year
  Sex: Male

DRUGS (3)
  1. ORGOVYX [Suspect]
     Active Substance: RELUGOLIX
     Indication: Prostate cancer
     Route: 048
  2. ORGOVYX [Suspect]
     Active Substance: RELUGOLIX
     Dosage: 120 MG, QD
     Route: 048
     Dates: start: 20240213
  3. PITAVASTATIN [Suspect]
     Active Substance: PITAVASTATIN
     Indication: Blood cholesterol abnormal

REACTIONS (11)
  - Glycosylated haemoglobin increased [Unknown]
  - Grip strength decreased [Unknown]
  - Extremity contracture [Unknown]
  - Renal disorder [Unknown]
  - Blood cholesterol abnormal [Unknown]
  - Pain [Recovering/Resolving]
  - Pain in extremity [Unknown]
  - Musculoskeletal stiffness [Unknown]
  - Fatigue [Unknown]
  - Myalgia [Recovering/Resolving]
  - Asthenia [Unknown]
